FAERS Safety Report 5586443-1 (Version None)
Quarter: 2008Q1

REPORT INFORMATION
  Report Type: 
  Country: None (occurrence: None)
  Receive Date: 20080110
  Receipt Date: 20071226
  Transmission Date: 20080703
  Serious: Yes (Other)
  Sender: FDA-Public Use
  Company Number: IL-AMGEN-US259293

PATIENT
  Sex: Male

DRUGS (2)
  1. ENBREL [Suspect]
     Indication: PSORIASIS
     Route: 058
     Dates: start: 20071201
  2. CYMBALTA [Concomitant]
     Route: 065

REACTIONS (2)
  - BURNING SENSATION [None]
  - LYMPHOCYTE COUNT DECREASED [None]
